FAERS Safety Report 18227318 (Version 1)
Quarter: 2020Q3

REPORT INFORMATION
  Report Type: Spontaneous
  Country: ES (occurrence: ES)
  Receive Date: 20200903
  Receipt Date: 20200903
  Transmission Date: 20201103
  Serious: Yes (Other)
  Sender: FDA-Public Use
  Company Number: ES-ELI_LILLY_AND_COMPANY-US_010872914

PATIENT
  Age: 59 Year
  Sex: Male

DRUGS (7)
  1. VINORELBINE [Concomitant]
     Active Substance: VINORELBINE TARTRATE
     Indication: LUNG SQUAMOUS CELL CARCINOMA STAGE II
     Dosage: UNK, UNKNOWN
  2. NPH INSULIN [Concomitant]
     Active Substance: INSULIN BEEF
     Indication: DIABETES MELLITUS
     Dosage: UNK, CHRONIC MEDICATIONS
  3. GEMCITABINE HYDROCHLORIDE. [Suspect]
     Active Substance: GEMCITABINE HYDROCHLORIDE
     Indication: LUNG SQUAMOUS CELL CARCINOMA STAGE II
     Dosage: 1000 MG/M2, (1840 MG) INFUSED OVER 30 MINUTES
  4. CISPLATIN. [Concomitant]
     Active Substance: CISPLATIN
     Indication: LUNG SQUAMOUS CELL CARCINOMA STAGE II
     Dosage: UNK, UNKNOWN
  5. BROMAZEPAM [Concomitant]
     Active Substance: BROMAZEPAM
     Indication: PRODUCT USED FOR UNKNOWN INDICATION
     Dosage: UNK, CHRONIC MEDICATIONS
  6. PENTOXIFYLLINE. [Concomitant]
     Active Substance: PENTOXIFYLLINE
     Indication: PRODUCT USED FOR UNKNOWN INDICATION
     Dosage: UNK, CHRONIC MEDICATIONS
  7. SODIUM CHLORIDE. [Concomitant]
     Active Substance: SODIUM CHLORIDE
     Dosage: 250 ML, OTHER

REACTIONS (1)
  - Linear IgA disease [Recovered/Resolved]
